FAERS Safety Report 11099775 (Version 1)
Quarter: 2015Q2

REPORT INFORMATION
  Report Type: Report from Study
  Country: US (occurrence: None)
  Receive Date: 20150507
  Receipt Date: 20150507
  Transmission Date: 20150821
  Serious: Yes (Other)
  Sender: FDA-Public Use
  Company Number: US-2015CRT000212

PATIENT
  Age: 37 Year
  Sex: Female
  Weight: 67.6 kg

DRUGS (10)
  1. LISINOPRIL. [Concomitant]
     Active Substance: LISINOPRIL
  2. VITAMIN D /00107901/ (ERGOCALCIFEROL) [Concomitant]
  3. CRESTOR [Concomitant]
     Active Substance: ROSUVASTATIN CALCIUM
  4. ABILIFY [Concomitant]
     Active Substance: ARIPIPRAZOLE
  5. CYMBALTA [Concomitant]
     Active Substance: DULOXETINE HYDROCHLORIDE
  6. INVOKANA [Concomitant]
     Active Substance: CANAGLIFLOZIN
  7. KORLYM [Suspect]
     Active Substance: MIFEPRISTONE
     Indication: CUSHING^S SYNDROME
     Route: 048
     Dates: start: 20131212
  8. ANTARA [Concomitant]
     Active Substance: FENOFIBRATE
  9. TRAZODONE [Concomitant]
     Active Substance: TRAZODONE HYDROCHLORIDE
  10. NEXIUM [Concomitant]
     Active Substance: ESOMEPRAZOLE MAGNESIUM

REACTIONS (8)
  - Foot operation [None]
  - Peripheral swelling [None]
  - Ovarian mass [None]
  - Joint swelling [None]
  - Hysterectomy [None]
  - Amenorrhoea [None]
  - Vaginal haemorrhage [None]
  - Ovarian cyst [None]

NARRATIVE: CASE EVENT DATE: 201407
